FAERS Safety Report 7674973-8 (Version None)
Quarter: 2011Q3

REPORT INFORMATION
  Report Type: 
  Country: None (occurrence: None)
  Receive Date: 20110810
  Receipt Date: 20110729
  Transmission Date: 20111222
  Serious: Yes (Other)
  Sender: FDA-Public Use
  Company Number: CA-JNJFOC-20110406421

PATIENT
  Sex: Male
  Weight: 58.5 kg

DRUGS (4)
  1. TRAZODONE HCL [Concomitant]
     Indication: INSOMNIA
     Route: 065
     Dates: start: 20091220
  2. TRAZODONE HCL [Concomitant]
     Indication: ANXIETY
     Route: 065
     Dates: start: 20091220
  3. CONCERTA [Suspect]
     Route: 048
     Dates: start: 20091101
  4. CONCERTA [Suspect]
     Indication: ATTENTION DEFICIT/HYPERACTIVITY DISORDER
     Route: 048

REACTIONS (4)
  - WEIGHT INCREASED [None]
  - OVERDOSE [None]
  - DRUG INEFFECTIVE [None]
  - INCORRECT DOSE ADMINISTERED [None]
